FAERS Safety Report 21197895 (Version 1)
Quarter: 2022Q3

REPORT INFORMATION
  Report Type: Report from Study
  Country: US (occurrence: US)
  Receive Date: 20220810
  Receipt Date: 20220810
  Transmission Date: 20221026
  Serious: Yes (Other)
  Sender: FDA-Public Use
  Company Number: US-BRISTOL-MYERS SQUIBB COMPANY-2022-085435

PATIENT
  Age: 64 Year
  Sex: Female
  Weight: 86 kg

DRUGS (22)
  1. REVLIMID [Suspect]
     Active Substance: LENALIDOMIDE
     Indication: Plasma cell myeloma
     Dosage: 21 OUT OF 28DAYS
     Route: 048
     Dates: start: 2020
  2. GLYMESASON [DEXAMETHASONE] [Concomitant]
     Indication: Product used for unknown indication
     Route: 065
  3. DARZALEX [Concomitant]
     Active Substance: DARATUMUMAB
     Indication: Product used for unknown indication
     Route: 065
  4. OMEPRAZOLE [Concomitant]
     Active Substance: OMEPRAZOLE
     Indication: Product used for unknown indication
     Route: 065
  5. ASPIRIN TEVA [Concomitant]
     Indication: Product used for unknown indication
     Route: 065
  6. TYLENOL [Concomitant]
     Active Substance: ACETAMINOPHEN
     Indication: Product used for unknown indication
     Route: 065
  7. LEVOTHYROXINE SODIUM [Concomitant]
     Active Substance: LEVOTHYROXINE SODIUM
     Indication: Product used for unknown indication
     Route: 065
  8. GLOBAL ACYCLOVIR [Concomitant]
     Indication: Product used for unknown indication
     Route: 065
  9. POTASSIUM K 20 [Concomitant]
     Indication: Product used for unknown indication
     Route: 065
  10. YUHAN VITAMIN C [Concomitant]
     Indication: Product used for unknown indication
     Route: 065
  11. GLICLAZIDE [Concomitant]
     Active Substance: GLICLAZIDE
     Indication: Product used for unknown indication
     Route: 065
  12. LAXEL [MAGNESIUM HYDROXIDE] [Concomitant]
     Indication: Product used for unknown indication
     Route: 065
  13. KRILL OIL TVS [Concomitant]
     Indication: Product used for unknown indication
     Route: 065
  14. LUTEIN-ZEAXANTHIN [Concomitant]
     Indication: Product used for unknown indication
     Route: 065
  15. CHOLECALCIFEROL [Concomitant]
     Active Substance: CHOLECALCIFEROL
     Indication: Product used for unknown indication
     Route: 065
  16. ERYTOP [ERYTHROMYCIN] [Concomitant]
     Indication: Product used for unknown indication
     Route: 065
  17. NOCTURA [MELATONIN] [Concomitant]
     Indication: Product used for unknown indication
     Route: 065
  18. BENADRYL COUGH [Concomitant]
     Indication: Product used for unknown indication
     Route: 065
  19. FAITH MULTIVITAMIN [Concomitant]
     Indication: Product used for unknown indication
     Route: 065
  20. ROEWO VITAMIN B12 [Concomitant]
     Indication: Product used for unknown indication
     Route: 065
  21. L GLUTAMINE ZN [Concomitant]
     Indication: Product used for unknown indication
     Route: 065
  22. ALBUTEROL SULFATE [Concomitant]
     Active Substance: ALBUTEROL SULFATE
     Indication: Product used for unknown indication
     Route: 065

REACTIONS (3)
  - Feeling abnormal [Unknown]
  - Constipation [Unknown]
  - Diarrhoea [Unknown]
